FAERS Safety Report 14318609 (Version 1)
Quarter: 2017Q4

REPORT INFORMATION
  Report Type: Spontaneous
  Country: US (occurrence: US)
  Receive Date: 20171222
  Receipt Date: 20171222
  Transmission Date: 20180321
  Serious: Yes (Hospitalization, Other)
  Sender: FDA-Public Use
  Company Number: US-MYLANLABS-2017M1078548

PATIENT
  Age: 57 Year
  Sex: Female

DRUGS (8)
  1. FENTANYL. [Suspect]
     Active Substance: FENTANYL
     Dosage: DOSING WAS CHANGED TO EVERY 48 HOURS
     Route: 062
  2. METHADONE [Suspect]
     Active Substance: METHADONE HYDROCHLORIDE
     Dosage: 150MG THREE TIMES A DAY, SUBSEQUENTLY RECEIVED AGAIN AT 120MG ONCE A DAY UNDER PALLIATIVE CARE. T...
     Route: 048
  3. GABAPENTIN. [Suspect]
     Active Substance: GABAPENTIN
     Indication: NEURALGIA
     Dosage: UNK
     Route: 050
  4. SERTRALINE [Suspect]
     Active Substance: SERTRALINE HYDROCHLORIDE
     Indication: DEPRESSION
     Dosage: UNK
     Route: 050
  5. PROMETHAZINE [Suspect]
     Active Substance: PROMETHAZINE\PROMETHAZINE HYDROCHLORIDE
     Indication: NAUSEA
     Dosage: UNK
     Route: 050
  6. FENTANYL. [Suspect]
     Active Substance: FENTANYL
     Indication: CANCER PAIN
     Dosage: EXCHANGED IN THE CLINIC EVERY 3 DAYS
     Route: 062
  7. MORPHINE MYLAN [Suspect]
     Active Substance: MORPHINE
     Dosage: UNK
     Route: 050
  8. METHADONE [Suspect]
     Active Substance: METHADONE HYDROCHLORIDE
     Indication: CANCER PAIN
     Dosage: 120 MG, QD
     Route: 048

REACTIONS (5)
  - Agitation [Unknown]
  - Sedation complication [Unknown]
  - Hallucination, visual [Unknown]
  - Drug abuse [Unknown]
  - Hallucination, auditory [Unknown]
